FAERS Safety Report 13338017 (Version 1)
Quarter: 2017Q1

REPORT INFORMATION
  Report Type: Spontaneous
  Country: US (occurrence: US)
  Receive Date: 20170315
  Receipt Date: 20170315
  Transmission Date: 20170428
  Serious: Yes (Other)
  Sender: FDA-Public Use
  Company Number: None

PATIENT
  Age: 54 Year
  Sex: Female
  Weight: 121.5 kg

DRUGS (3)
  1. LISINOPRIL. [Concomitant]
     Active Substance: LISINOPRIL
  2. BABY ASPIRIN [Concomitant]
     Active Substance: ASPIRIN
  3. METOPROLOL. [Suspect]
     Active Substance: METOPROLOL
     Indication: BLOOD PRESSURE MEASUREMENT
     Dosage: ?          QUANTITY:1 TABLET(S);?
     Route: 048
     Dates: start: 20160830, end: 20170225

REACTIONS (8)
  - Confusional state [None]
  - Dyspnoea [None]
  - Tinnitus [None]
  - Visual impairment [None]
  - Blindness transient [None]
  - Chest pain [None]
  - Night blindness [None]
  - Dizziness [None]

NARRATIVE: CASE EVENT DATE: 20170102
